FAERS Safety Report 18771974 (Version 1)
Quarter: 2021Q1

REPORT INFORMATION
  Report Type: Spontaneous
  Country: US (occurrence: US)
  Receive Date: 20210121
  Receipt Date: 20210121
  Transmission Date: 20210419
  Serious: Yes (Hospitalization)
  Sender: FDA-Public Use
  Company Number: US-ELI_LILLY_AND_COMPANY-US202101004371

PATIENT
  Age: 76 Year
  Sex: Male
  Weight: 102.1 kg

DRUGS (14)
  1. METOPROLOL SUCCINATE. [Concomitant]
     Active Substance: METOPROLOL SUCCINATE
  2. SODIUM CHLORIDE. [Concomitant]
     Active Substance: SODIUM CHLORIDE
  3. ELIQUIS [Concomitant]
     Active Substance: APIXABAN
     Indication: HYPERCOAGULATION
  4. INSULIN LISPRO [Concomitant]
     Active Substance: INSULIN LISPRO
  5. BAMLANIVIMAB 700MG [Suspect]
     Active Substance: BAMLANIVIMAB
     Indication: COVID-19
     Dosage: 700 MG, SINGLE
     Route: 041
     Dates: start: 20201230, end: 20201230
  6. ASCORBIC ACID. [Concomitant]
     Active Substance: ASCORBIC ACID
  7. TAMSULOSIN [Concomitant]
     Active Substance: TAMSULOSIN
  8. VITAMIN D [COLECALCIFEROL] [Concomitant]
     Active Substance: CHOLECALCIFEROL
  9. OXYCODONE AND ACETAMINOPHEN [Concomitant]
     Active Substance: ACETAMINOPHEN\OXYCODONE HYDROCHLORIDE
  10. FUROSEMIDE. [Concomitant]
     Active Substance: FUROSEMIDE
  11. IOPAMIDOL [Concomitant]
     Active Substance: IOPAMIDOL
  12. GABAPENTIN. [Concomitant]
     Active Substance: GABAPENTIN
  13. EZETIMIBE. [Concomitant]
     Active Substance: EZETIMIBE
  14. METOPROLOL TARTRATE. [Concomitant]
     Active Substance: METOPROLOL TARTRATE
     Route: 042

REACTIONS (3)
  - Diabetes mellitus [Unknown]
  - Respiratory failure [Unknown]
  - COVID-19 [Unknown]

NARRATIVE: CASE EVENT DATE: 20210104
